FAERS Safety Report 9518174 (Version 2)
Quarter: 2013Q4

REPORT INFORMATION
  Report Type: Spontaneous
  Country: CA (occurrence: CA)
  Receive Date: 20130912
  Receipt Date: 20131029
  Transmission Date: 20140711
  Serious: Yes (Other)
  Sender: FDA-Public Use
  Company Number: CA-BAYER-2013-108774

PATIENT
  Sex: Female

DRUGS (1)
  1. BETASERON [Suspect]
     Indication: RELAPSING-REMITTING MULTIPLE SCLEROSIS
     Dosage: 0.5 MG, UNK
     Dates: start: 1997

REACTIONS (6)
  - Multiple sclerosis relapse [None]
  - Hot flush [None]
  - Drug ineffective [None]
  - Unevaluable event [None]
  - Gastrooesophageal reflux disease [None]
  - Myalgia [None]
